FAERS Safety Report 15702989 (Version 1)
Quarter: 2018Q4

REPORT INFORMATION
  Report Type: Spontaneous
  Country: DE (occurrence: DE)
  Receive Date: 20181210
  Receipt Date: 20181210
  Transmission Date: 20190205
  Serious: Yes (Other)
  Sender: FDA-Public Use
  Company Number: DE-UCBSA-2018053506

PATIENT
  Age: 92 Year
  Sex: Female

DRUGS (1)
  1. VIMPAT [Suspect]
     Active Substance: LACOSAMIDE
     Indication: EPILEPSY
     Dosage: 100 MG, 2X/DAY (BID)
     Dates: start: 201811

REACTIONS (5)
  - Speech disorder [Unknown]
  - Amnesia [Unknown]
  - Vomiting [Unknown]
  - Disease progression [Unknown]
  - Confusional state [Unknown]

NARRATIVE: CASE EVENT DATE: 201811
